FAERS Safety Report 12399091 (Version 1)
Quarter: 2016Q2

REPORT INFORMATION
  Report Type: Spontaneous
  Country: US (occurrence: US)
  Receive Date: 20160524
  Receipt Date: 20160524
  Transmission Date: 20160815
  Serious: Yes (Death)
  Sender: FDA-Public Use
  Company Number: US-LPDUSPRD-20160437

PATIENT
  Age: 54 Year
  Sex: Male

DRUGS (4)
  1. BUSULFAN INJECTION (0517-0920-01) [Suspect]
     Active Substance: BUSULFAN
     Dosage: DOSE NOT PROVIDED
     Route: 065
  2. TACROLILMUS [Concomitant]
     Dosage: DOSE NOT STATED
     Route: 065
  3. FLUDARABINE [Suspect]
     Active Substance: FLUDARABINE PHOSPHATE
     Dosage: DOSE NOT PROVIDED
     Route: 065
  4. METHOTREXATE [Suspect]
     Active Substance: METHOTREXATE
     Dosage: DOSE NOT PROVIDED
     Route: 065

REACTIONS (5)
  - Leukoencephalopathy [Unknown]
  - Cytomegalovirus viraemia [None]
  - Post procedural complication [None]
  - Respiratory failure [Fatal]
  - Graft versus host disease in gastrointestinal tract [None]
